FAERS Safety Report 16667993 (Version 1)
Quarter: 2019Q3

REPORT INFORMATION
  Report Type: Spontaneous
  Country: US (occurrence: US)
  Receive Date: 20190619
  Receipt Date: 20190619
  Transmission Date: 20191004
  Serious: Yes (Death, Hospitalization)
  Sender: FDA-Public Use
  Company Number: None

PATIENT
  Age: 75 Year
  Sex: Male
  Weight: 89.4 kg

DRUGS (1)
  1. LEUPROLIDE ACETATE. [Suspect]
     Active Substance: LEUPROLIDE ACETATE
     Dates: end: 20190402

REACTIONS (3)
  - Multiple organ dysfunction syndrome [None]
  - Acute lymphocytic leukaemia [None]
  - Blast cell crisis [None]

NARRATIVE: CASE EVENT DATE: 20190528
